FAERS Safety Report 12463539 (Version 4)
Quarter: 2016Q3

REPORT INFORMATION
  Report Type: Report from Study
  Country: GB (occurrence: GB)
  Receive Date: 20160614
  Receipt Date: 20160906
  Transmission Date: 20161109
  Serious: Yes (Life-Threatening, Hospitalization, Other)
  Sender: FDA-Public Use
  Company Number: GB-ROCHE-1774547

PATIENT
  Age: 63 Year
  Sex: Female

DRUGS (2)
  1. NUTROPIN AQ [Suspect]
     Active Substance: SOMATROPIN
     Indication: PRODUCT USE ISSUE
  2. NUTROPIN AQ [Suspect]
     Active Substance: SOMATROPIN
     Indication: PITUITARY TUMOUR
     Dosage: 10MG/2ML
     Route: 065
     Dates: end: 20160511

REACTIONS (12)
  - Sciatica [Unknown]
  - Intervertebral disc space narrowing [Unknown]
  - Gastroenteritis salmonella [Unknown]
  - Plasma cell myeloma [Not Recovered/Not Resolved]
  - Hypothyroidism [Unknown]
  - Peripheral arthritis [Unknown]
  - Spinal compression fracture [Not Recovered/Not Resolved]
  - Bone cancer [Unknown]
  - Major depression [Unknown]
  - Constipation [Unknown]
  - Intervertebral disc protrusion [Unknown]
  - Back pain [Unknown]

NARRATIVE: CASE EVENT DATE: 20060923
